FAERS Safety Report 8979988 (Version 1)
Quarter: 2012Q4

REPORT INFORMATION
  Report Type: 
  Country: US (occurrence: US)
  Receive Date: 20121221
  Receipt Date: 20121221
  Transmission Date: 20130627
  Serious: Yes (Other)
  Sender: FDA-Public Use
  Company Number: US-TEVA-377078USA

PATIENT

DRUGS (3)
  1. HALOPERIDOL [Suspect]
     Indication: AGITATION
     Route: 030
  2. PHENCYCLIDINE [Suspect]
     Route: 065
  3. LORAZEPAM [Concomitant]
     Indication: AGITATION
     Route: 030

REACTIONS (2)
  - Hypoxia [Recovered/Resolved]
  - Toxicity to various agents [Unknown]
